FAERS Safety Report 6124881-9 (Version None)
Quarter: 2009Q1

REPORT INFORMATION
  Report Type: 
  Country: None (occurrence: None)
  Receive Date: 20090319
  Receipt Date: 20090311
  Transmission Date: 20090719
  Serious: Yes (Hospitalization, Other)
  Sender: FDA-Public Use
  Company Number: JP-ABBOTT-05P-087-0316092-00

PATIENT
  Sex: Male

DRUGS (11)
  1. NORVIR [Suspect]
     Indication: HIV INFECTION
     Route: 048
     Dates: start: 20040728, end: 20050424
  2. LAMIVUDINE [Suspect]
     Indication: HIV INFECTION
     Route: 048
     Dates: start: 20050425, end: 20050523
  3. LAMIVUDINE [Suspect]
     Route: 048
     Dates: start: 20050401, end: 20050424
  4. STAVUDINE [Suspect]
     Indication: HIV INFECTION
     Route: 048
     Dates: start: 20040401, end: 20050424
  5. ATAZANAVIR SULFATE [Suspect]
     Indication: HIV INFECTION
     Route: 048
     Dates: start: 20040401, end: 20040727
  6. ATAZANAVIR SULFATE [Suspect]
     Route: 048
     Dates: start: 20040728, end: 20050424
  7. COAGULATION FACTOR VIII [Concomitant]
     Indication: HAEMARTHROSIS
     Route: 042
     Dates: start: 20040401, end: 20050411
  8. EFAVIRENZ [Concomitant]
     Indication: HIV INFECTION
     Route: 048
     Dates: start: 20050425
  9. TENOFOVIR DISOPROXIL FUMARATE [Concomitant]
     Indication: HIV INFECTION
     Route: 048
     Dates: start: 20050424, end: 20050523
  10. EMTRICITABINE W/TENOFOVIR [Concomitant]
     Indication: HIV INFECTION
     Route: 048
     Dates: start: 20050524
  11. OCTOCOG ALFA [Concomitant]
     Indication: HAEMOPHILIA
     Dosage: 1-3 TIMES PER WEEK
     Route: 055
     Dates: start: 20050412

REACTIONS (7)
  - HAEMATOCHEZIA [None]
  - HEPATIC CIRRHOSIS [None]
  - HEPATIC FUNCTION ABNORMAL [None]
  - HEPATITIS C [None]
  - LIPOATROPHY [None]
  - NAUSEA [None]
  - OESOPHAGEAL VARICES HAEMORRHAGE [None]
